FAERS Safety Report 7654240-9 (Version None)
Quarter: 2011Q3

REPORT INFORMATION
  Report Type: 
  Country: None (occurrence: None)
  Receive Date: 20110802
  Receipt Date: 20110802
  Transmission Date: 20111222
  Serious: No
  Sender: FDA-Public Use
  Company Number: None

PATIENT
  Sex: Female
  Weight: 58.514 kg

DRUGS (2)
  1. BRAND NAME FORM DEPAKOTE ER [Concomitant]
  2. DIVALPROEX EXTENDED-RELEASE [Suspect]
     Indication: MIGRAINE
     Dosage: 250 MG 1 QHS BY MOUTH
     Route: 048
     Dates: start: 20101229

REACTIONS (1)
  - DRUG INEFFECTIVE [None]
